FAERS Safety Report 7352659-7 (Version None)
Quarter: 2011Q1

REPORT INFORMATION
  Report Type: 
  Country: None (occurrence: None)
  Receive Date: 20110301
  Receipt Date: 20100826
  Transmission Date: 20110831
  Serious: Yes (Hospitalization)
  Sender: FDA-Public Use
  Company Number: US-JNJFOC-20070300337

PATIENT
  Age: 38 Year
  Sex: Female
  Weight: 59.4212 kg

DRUGS (4)
  1. CHILDREN'S MOTRIN [Suspect]
     Indication: PYREXIA
     Dates: start: 20050912
  2. CHILDREN'S MOTRIN [Suspect]
     Indication: HEADACHE
     Dates: start: 20050912
  3. PRENATAL VITAMINS (PRENATAL VITAMINS /01549301/) [Concomitant]
  4. FERTILITY MEDICATION (GONADORELIN) [Concomitant]

REACTIONS (1)
  - TOXIC EPIDERMAL NECROLYSIS [None]
